FAERS Safety Report 17791733 (Version 1)
Quarter: 2020Q2

REPORT INFORMATION
  Report Type: Spontaneous
  Country: CA (occurrence: CA)
  Receive Date: 20200515
  Receipt Date: 20200515
  Transmission Date: 20200714
  Serious: Yes (Other)
  Sender: FDA-Public Use
  Company Number: CA-ROCHE-2597016

PATIENT
  Age: 51 Year
  Sex: Female

DRUGS (12)
  1. LEFLUNOMIDE. [Concomitant]
     Active Substance: LEFLUNOMIDE
  2. REMICADE [Suspect]
     Active Substance: INFLIXIMAB
     Indication: PRODUCT USED FOR UNKNOWN INDICATION
     Route: 042
  3. ARAVA [Concomitant]
     Active Substance: LEFLUNOMIDE
  4. METHOTREXATE. [Concomitant]
     Active Substance: METHOTREXATE
  5. RITUXIMAB. [Suspect]
     Active Substance: RITUXIMAB
     Indication: PRODUCT USED FOR UNKNOWN INDICATION
     Route: 041
  6. ENBREL [Suspect]
     Active Substance: ETANERCEPT
     Indication: PRODUCT USED FOR UNKNOWN INDICATION
     Route: 065
  7. ORENCIA [Suspect]
     Active Substance: ABATACEPT
     Indication: PRODUCT USED FOR UNKNOWN INDICATION
     Route: 065
  8. CAFFEINE. [Concomitant]
     Active Substance: CAFFEINE
  9. NAPROXEN. [Concomitant]
     Active Substance: NAPROXEN
  10. FOLIC ACID. [Concomitant]
     Active Substance: FOLIC ACID
  11. HYDROXYCHLOROQUINE SULFATE. [Suspect]
     Active Substance: HYDROXYCHLOROQUINE SULFATE
     Indication: PRODUCT USED FOR UNKNOWN INDICATION
     Route: 065
  12. ACETAMINOPHEN. [Concomitant]
     Active Substance: ACETAMINOPHEN

REACTIONS (3)
  - Drug ineffective [Unknown]
  - Off label use [Unknown]
  - Rheumatoid arthritis [Not Recovered/Not Resolved]
